FAERS Safety Report 9451481 (Version 1)
Quarter: 2013Q3

REPORT INFORMATION
  Report Type: Report from Study
  Country: US (occurrence: US)
  Receive Date: 20130810
  Receipt Date: 20130810
  Transmission Date: 20140515
  Serious: Yes (Other)
  Sender: FDA-Public Use
  Company Number: US-ROCHE-1259983

PATIENT
  Age: 10 Year
  Sex: Female

DRUGS (1)
  1. RITUXIMAB [Suspect]
     Indication: NEOPLASM MALIGNANT
     Dosage: RECEIVED 4 ONCE-WEEKLY DOSES
     Route: 065

REACTIONS (1)
  - Progressive multifocal leukoencephalopathy [Unknown]
